FAERS Safety Report 6979586-9 (Version None)
Quarter: 2010Q3

REPORT INFORMATION
  Report Type: 
  Country: None (occurrence: None)
  Receive Date: 20100910
  Receipt Date: 20100910
  Transmission Date: 20110219
  Serious: Yes (Life-Threatening, Hospitalization)
  Sender: FDA-Public Use
  Company Number: None

PATIENT
  Age: 49 Year
  Sex: Male
  Weight: 99.7913 kg

DRUGS (1)
  1. HUMIRA [Suspect]
     Indication: PSORIASIS
     Dosage: 1 40MG INJECTION ONCE PER MONTH SQ
     Route: 058
     Dates: start: 20090401, end: 20100630

REACTIONS (4)
  - HAEMORRHAGIC STROKE [None]
  - NECK PAIN [None]
  - THROMBOTIC STROKE [None]
  - TINNITUS [None]
